FAERS Safety Report 8108942-0 (Version None)
Quarter: 2012Q1

REPORT INFORMATION
  Report Type: 
  Country: None (occurrence: None)
  Receive Date: 20120202
  Receipt Date: 20120130
  Transmission Date: 20120608
  Serious: Yes (Life-Threatening, Hospitalization)
  Sender: FDA-Public Use
  Company Number: DE-GLAXOSMITHKLINE-D0074089A

PATIENT
  Sex: Male

DRUGS (4)
  1. IRON [Concomitant]
     Route: 065
  2. DUTASTERIDE/TAMSULOSIN HYDROCHLORIDE [Suspect]
     Indication: BENIGN PROSTATIC HYPERPLASIA
     Route: 065
     Dates: start: 20111026, end: 20111031
  3. BETA BLOCKER [Concomitant]
     Route: 065
  4. ACE-INHIBITOR [Concomitant]
     Route: 065

REACTIONS (13)
  - SYNCOPE [None]
  - VENTRICULAR TACHYCARDIA [None]
  - PANCYTOPENIA [None]
  - MYELODYSPLASTIC SYNDROME [None]
  - HEADACHE [None]
  - BONE MARROW FAILURE [None]
  - SPLENOMEGALY [None]
  - VITAMIN B12 DEFICIENCY [None]
  - CERVICOGENIC HEADACHE [None]
  - CHOLELITHIASIS [None]
  - HYPOTENSION [None]
  - DIZZINESS [None]
  - ANAEMIA MACROCYTIC [None]
